FAERS Safety Report 4359405-X (Version None)
Quarter: 2004Q2

REPORT INFORMATION
  Report Type: 
  Country: None (occurrence: None)
  Receive Date: 20040514
  Receipt Date: 20040514
  Transmission Date: 20050107
  Serious: Yes (Hospitalization)
  Sender: FDA-Public Use
  Company Number: None

PATIENT
  Age: 47 Year
  Sex: Female

DRUGS (7)
  1. QUETIAPINE [Suspect]
     Indication: SCHIZOPHRENIA
     Dosage: 75 MG QD
     Dates: start: 20021001
  2. DIPHENHYDRAMINE HCL [Suspect]
     Dosage: 25 MG QID
     Dates: start: 20020701
  3. OMEPRAZOLE [Concomitant]
  4. ZIPRASIDONE [Concomitant]
  5. FUROSEMIDE [Concomitant]
  6. ESTROGENIC SUBSTANCE [Concomitant]
  7. LAMOTRIGONE [Concomitant]

REACTIONS (1)
  - SOMNOLENCE [None]
